FAERS Safety Report 23266053 (Version 1)
Quarter: 2023Q4

REPORT INFORMATION
  Report Type: Other
  Country: US (occurrence: None)
  Receive Date: 20231206
  Receipt Date: 20231206
  Transmission Date: 20240110
  Serious: No
  Sender: FDA-Public Use
  Company Number: US-ROCHE-3470468

PATIENT
  Age: 54 Year
  Sex: Female
  Weight: 96.248 kg

DRUGS (7)
  1. OCREVUS [Suspect]
     Active Substance: OCRELIZUMAB
     Indication: Relapsing-remitting multiple sclerosis
     Route: 042
     Dates: start: 201804
  2. GABAPENTIN [Concomitant]
     Active Substance: GABAPENTIN
  3. HYDROXYCHLOROQUINE [Concomitant]
     Active Substance: HYDROXYCHLOROQUINE
  4. CELEBREX [Concomitant]
     Active Substance: CELECOXIB
  5. NEURONTIN [Concomitant]
     Active Substance: GABAPENTIN
  6. PLAQUENIL [Concomitant]
     Active Substance: HYDROXYCHLOROQUINE SULFATE
  7. TECFIDERA [Concomitant]
     Active Substance: DIMETHYL FUMARATE

REACTIONS (2)
  - COVID-19 [Recovered/Resolved]
  - Lower respiratory tract congestion [Not Recovered/Not Resolved]

NARRATIVE: CASE EVENT DATE: 20220601
